FAERS Safety Report 21460504 (Version 1)
Quarter: 2022Q4

REPORT INFORMATION
  Report Type: Spontaneous
  Country: US (occurrence: US)
  Receive Date: 20221014
  Receipt Date: 20221014
  Transmission Date: 20230113
  Serious: No
  Sender: FDA-Public Use
  Company Number: US-GLENMARK PHARMACEUTICALS-2022GMK074474

PATIENT

DRUGS (1)
  1. LIDOCAINE [Suspect]
     Active Substance: LIDOCAINE
     Indication: Arthralgia
     Dosage: UNK (HE IS SQUEEZING OUT ABOUT A PEA SIZE QUANTITY OF THE MEDICATION, RUBBING IT ON HIS HIP AREA (AR
     Route: 061

REACTIONS (1)
  - Product use in unapproved indication [Unknown]
